FAERS Safety Report 9351731 (Version 1)
Quarter: 2013Q2

REPORT INFORMATION
  Report Type: Spontaneous
  Country: DE (occurrence: None)
  Receive Date: 20130612
  Receipt Date: 20130612
  Transmission Date: 20140414
  Serious: Yes (Other)
  Sender: FDA-Public Use
  Company Number: 2013-226

PATIENT
  Age: 42 Year
  Sex: Male

DRUGS (6)
  1. CLOZAPINE [Suspect]
     Indication: SCHIZOPHRENIA, CATATONIC TYPE
     Route: 048
  2. PERAZINE [Suspect]
     Indication: AGITATION
     Route: 048
  3. LITHIUM CARBONATE (LITHIUM CARBONATE) [Concomitant]
  4. HALOPERIDOL (HALOPERIDOL) (HALOPERIDOL) [Concomitant]
  5. LORAZEPAM (LORAZEPAM) [Concomitant]
  6. TEMAZEPAM (TEMAZEPAM) [Concomitant]

REACTIONS (4)
  - Antipsychotic drug level increased [None]
  - Fear [None]
  - Agitation [None]
  - Drug interaction [None]
